FAERS Safety Report 7091611-6 (Version None)
Quarter: 2010Q4

REPORT INFORMATION
  Report Type: 
  Country: None (occurrence: None)
  Receive Date: 20101109
  Receipt Date: 20101103
  Transmission Date: 20110411
  Serious: Yes (Other)
  Sender: FDA-Public Use
  Company Number: US-PFIZER INC-2010140394

PATIENT
  Sex: Female
  Weight: 54.4 kg

DRUGS (10)
  1. CHANTIX [Suspect]
     Indication: SMOKING CESSATION THERAPY
     Dosage: 1 MG, 2X/DAY
     Route: 048
     Dates: start: 20101026
  2. GEMFIBROZIL [Concomitant]
     Dosage: UNK
  3. NEXIUM [Concomitant]
     Dosage: UNK
  4. WELLBUTRIN [Concomitant]
     Dosage: UNK
  5. LORAZEPAM [Concomitant]
     Dosage: UNK
  6. CITALOPRAM [Concomitant]
     Dosage: 20 MG, UNK
  7. ORAMORPH SR [Concomitant]
     Dosage: 30 MG, UNK
  8. TEMAZEPAM [Concomitant]
     Indication: SLEEP DISORDER
     Dosage: UNK
  9. SOMA [Concomitant]
     Dosage: UNK
  10. TOPAMAX [Concomitant]
     Indication: PAIN IN EXTREMITY
     Dosage: UNK

REACTIONS (1)
  - NERVOUSNESS [None]
